FAERS Safety Report 6402700-0 (Version None)
Quarter: 2009Q4

REPORT INFORMATION
  Report Type: 
  Country: None (occurrence: None)
  Receive Date: 20091009
  Receipt Date: 20090928
  Transmission Date: 20100525
  Serious: Yes (Life-Threatening)
  Sender: FDA-Public Use
  Company Number: 8052817

PATIENT
  Age: 62 Year
  Sex: Male

DRUGS (9)
  1. KEPPRA [Suspect]
     Dosage: PO
     Route: 048
     Dates: start: 20090601, end: 20090921
  2. ROCEPHIN [Suspect]
     Indication: ENDOCARDITIS
     Dosage: 2 G /D, IV
     Route: 042
     Dates: start: 20090826, end: 20090827
  3. ROCEPHIN [Suspect]
     Indication: ENDOCARDITIS
     Dosage: 4 G /D; IV
     Route: 042
     Dates: start: 20090828, end: 20090921
  4. TAVANIC [Suspect]
     Indication: ENDOCARDITIS
     Dosage: 750 MG /D; PO
     Route: 048
     Dates: start: 20090830, end: 20090915
  5. TAVANIC [Suspect]
     Indication: ENDOCARDITIS
     Dosage: 1000 MG /D; PO
     Route: 048
     Dates: start: 20090916, end: 20090921
  6. MEDROL [Concomitant]
  7. DETENSIEL [Concomitant]
  8. DIGOXIN [Concomitant]
  9. GENTALLINE [Concomitant]

REACTIONS (4)
  - AGRANULOCYTOSIS [None]
  - ENDOCARDITIS STAPHYLOCOCCAL [None]
  - STREPTOCOCCAL SEPSIS [None]
  - URTICARIA [None]
